FAERS Safety Report 18137442 (Version 2)
Quarter: 2020Q3

REPORT INFORMATION
  Report Type: Report from Study
  Country: US (occurrence: US)
  Receive Date: 20200812
  Receipt Date: 20200821
  Transmission Date: 20201103
  Serious: Yes (Other)
  Sender: FDA-Public Use
  Company Number: US-BRISTOL-MYERS SQUIBB COMPANY-BMS-2020-064090

PATIENT
  Sex: Male

DRUGS (1)
  1. APIXABAN [Suspect]
     Active Substance: APIXABAN
     Indication: PRODUCT USED FOR UNKNOWN INDICATION
     Dosage: UNK
     Route: 065

REACTIONS (7)
  - Arthropathy [Unknown]
  - Dementia Alzheimer^s type [Unknown]
  - Cardiac disorder [Unknown]
  - Bone disorder [Unknown]
  - Back disorder [Unknown]
  - Atrial fibrillation [Unknown]
  - Arthritis [Unknown]
